FAERS Safety Report 4614739-6 (Version None)
Quarter: 2005Q1

REPORT INFORMATION
  Report Type: 
  Country: None (occurrence: None)
  Receive Date: 20050322
  Receipt Date: 20050314
  Transmission Date: 20050727
  Serious: Yes (Other)
  Sender: FDA-Public Use
  Company Number: PHFR2005GB01219

PATIENT
  Age: 45 Year
  Sex: Male

DRUGS (1)
  1. LAMISIL [Suspect]
     Indication: FUNGAL SKIN INFECTION
     Dosage: 250MG/DAY
     Route: 048
     Dates: start: 20040805, end: 20050116

REACTIONS (1)
  - MYOCARDIAL INFARCTION [None]
